FAERS Safety Report 9099046 (Version 2)
Quarter: 2013Q2

REPORT INFORMATION
  Report Type: Spontaneous
  Country: US (occurrence: US)
  Receive Date: 20130213
  Receipt Date: 20130517
  Transmission Date: 20140414
  Serious: Yes (Hospitalization)
  Sender: FDA-Public Use
  Company Number: US-B.I. PHARMACEUTICALS,INC./RIDGEFIELD-2013-BI-03634BP

PATIENT
  Age: 90 Year
  Sex: Female
  Weight: 46.72 kg

DRUGS (7)
  1. PRADAXA [Suspect]
     Indication: ATRIAL FIBRILLATION
     Dosage: 300 MG
     Route: 048
     Dates: start: 20110209, end: 20110215
  2. SOTALOL [Concomitant]
     Dosage: 160 MG
  3. BENICAR [Concomitant]
     Dosage: 10 MG
  4. CRESTOR [Concomitant]
  5. ASPIRIN [Concomitant]
     Dosage: 81 MG
  6. BENADRYL [Concomitant]
     Dosage: 25 MG
  7. HYDROCODONE [Concomitant]

REACTIONS (1)
  - Gastrointestinal haemorrhage [Recovered/Resolved]
